FAERS Safety Report 9315391 (Version 3)
Quarter: 2013Q3

REPORT INFORMATION
  Report Type: Report from Study
  Country: CH (occurrence: CH)
  Receive Date: 20130529
  Receipt Date: 20130704
  Transmission Date: 20140515
  Serious: Yes (Death)
  Sender: FDA-Public Use
  Company Number: CH-ROCHE-1225296

PATIENT
  Sex: Male

DRUGS (3)
  1. RITUXIMAB [Suspect]
     Indication: B-CELL LYMPHOMA
     Dosage: DATE OF MOST RECENT DOSE 04/APR/2013
     Route: 042
     Dates: start: 20130404
  2. BENDAMUSTINE HYDROCHLORIDE [Suspect]
     Indication: B-CELL LYMPHOMA
     Dosage: DATE OF MOST RECENT DOSE 05/MAY/2013
     Route: 042
     Dates: start: 20130404
  3. LENALIDOMIDE [Suspect]
     Indication: B-CELL LYMPHOMA
     Dosage: DATE OF MOST RECENT DOSE IS 25/APR/2013
     Route: 048
     Dates: start: 20130404

REACTIONS (1)
  - Neoplasm progression [Fatal]
